FAERS Safety Report 6230817-2 (Version None)
Quarter: 2009Q2

REPORT INFORMATION
  Report Type: 
  Country: None (occurrence: None)
  Receive Date: 20090616
  Receipt Date: 20090609
  Transmission Date: 20091009
  Serious: Yes (Life-Threatening)
  Sender: FDA-Public Use
  Company Number: JP-JNJFOC-20090604196

PATIENT
  Age: 57 Year
  Sex: Male

DRUGS (13)
  1. LITHIUM CARBONATE [Suspect]
     Route: 065
  2. LITHIUM CARBONATE [Suspect]
     Dosage: RESUMPTION OF TREATMENT DUE TO LOW SERUM LITHIUM LEVELS AND DETERIORATED PSYCHOTIC STATUS.
     Route: 065
  3. LITHIUM CARBONATE [Suspect]
     Indication: MANIA
     Route: 065
  4. HALOPERIDOL [Suspect]
     Indication: DRUG USE FOR UNKNOWN INDICATION
     Route: 065
  5. CARBAMAZEPINE [Suspect]
     Indication: MANIA
     Route: 065
  6. ZOTEPINE [Suspect]
     Indication: DRUG USE FOR UNKNOWN INDICATION
     Route: 065
  7. PROMETHAZINE [Suspect]
     Indication: DRUG USE FOR UNKNOWN INDICATION
     Route: 065
  8. NITRAZEPAM [Suspect]
     Indication: DRUG USE FOR UNKNOWN INDICATION
     Route: 065
  9. CHLORPROMAZINE [Suspect]
     Indication: DRUG USE FOR UNKNOWN INDICATION
     Route: 065
  10. PHENOBARBITAL TAB [Suspect]
     Indication: DRUG USE FOR UNKNOWN INDICATION
     Route: 065
  11. VALPROATE SODIUM [Suspect]
     Indication: DEPRESSED MOOD
     Route: 065
  12. LEVOMEPROMAZINE [Suspect]
     Indication: DEPRESSED MOOD
     Route: 065
  13. PIPERIDINE [Suspect]
     Indication: DRUG USE FOR UNKNOWN INDICATION
     Route: 065

REACTIONS (2)
  - ADAMS-STOKES SYNDROME [None]
  - ATRIOVENTRICULAR BLOCK COMPLETE [None]
